FAERS Safety Report 6663602-8 (Version None)
Quarter: 2010Q1

REPORT INFORMATION
  Report Type: 
  Country: None (occurrence: None)
  Receive Date: 20100331
  Receipt Date: 20100331
  Transmission Date: 20100710
  Serious: Yes (Death)
  Sender: FDA-Public Use
  Company Number: None

PATIENT
  Age: 75 Year
  Sex: Female
  Weight: 81 kg

DRUGS (2)
  1. CLOPIDOGREL [Suspect]
     Indication: PERIPHERAL VASCULAR DISORDER
     Dosage: 75 MG DAILY PO
     Route: 048
     Dates: start: 20080202, end: 20100114
  2. ENOXAPARIN SODIUM [Suspect]
     Indication: PERIPHERAL VASCULAR DISORDER
     Dosage: 30 MG DAILY SQ
     Route: 058
     Dates: start: 20080310, end: 20100111

REACTIONS (5)
  - COLITIS [None]
  - GENERAL PHYSICAL HEALTH DETERIORATION [None]
  - NECROSIS [None]
  - PLATELET COUNT DECREASED [None]
  - RENAL FAILURE ACUTE [None]
